FAERS Safety Report 24175136 (Version 8)
Quarter: 2025Q1

REPORT INFORMATION
  Report Type: Spontaneous
  Country: US (occurrence: US)
  Receive Date: 20240805
  Receipt Date: 20250127
  Transmission Date: 20250408
  Serious: No
  Sender: PFIZER
  Company Number: US-PFIZER INC-2017403188

PATIENT
  Age: 39 Year
  Sex: Female
  Weight: 51.701 kg

DRUGS (7)
  1. XELJANZ [Suspect]
     Active Substance: TOFACITINIB CITRATE
     Indication: Vitiligo
     Dosage: 5 MG, 2X/DAY (BID)
     Route: 048
     Dates: start: 2016
  2. XELJANZ [Suspect]
     Active Substance: TOFACITINIB CITRATE
     Indication: Pigmentation disorder
     Dosage: 5 MG, 2X/DAY
     Route: 048
  3. XELJANZ [Suspect]
     Active Substance: TOFACITINIB CITRATE
     Indication: Urticaria
  4. XELJANZ [Suspect]
     Active Substance: TOFACITINIB CITRATE
     Indication: Dermatitis allergic
  5. XELJANZ [Suspect]
     Active Substance: TOFACITINIB CITRATE
     Indication: Eczema
  6. XELJANZ [Suspect]
     Active Substance: TOFACITINIB CITRATE
     Indication: Dermatitis atopic
  7. XELJANZ [Suspect]
     Active Substance: TOFACITINIB CITRATE
     Indication: Rheumatoid arthritis

REACTIONS (2)
  - Condition aggravated [Unknown]
  - Intentional product misuse [Unknown]
